FAERS Safety Report 20015637 (Version 1)
Quarter: 2021Q4

REPORT INFORMATION
  Report Type: Spontaneous
  Country: US (occurrence: None)
  Receive Date: 20211101
  Receipt Date: 20211101
  Transmission Date: 20220304
  Serious: Yes (Life-Threatening)
  Sender: FDA-Public Use
  Company Number: None

PATIENT
  Age: 67 Year
  Sex: Female
  Weight: 45.81 kg

DRUGS (1)
  1. NIVOLUMAB [Suspect]
     Active Substance: NIVOLUMAB
     Indication: Non-small cell lung cancer stage IV
     Dosage: FREQUENCY : ONCE;?OTHER ROUTE : IV;?
     Route: 050
     Dates: start: 20180618, end: 20201201

REACTIONS (2)
  - Hyperthyroidism [None]
  - Adrenal insufficiency [None]

NARRATIVE: CASE EVENT DATE: 20210104
